FAERS Safety Report 18893065 (Version 1)
Quarter: 2021Q1

REPORT INFORMATION
  Report Type: Spontaneous
  Country: US (occurrence: US)
  Receive Date: 20210215
  Receipt Date: 20210215
  Transmission Date: 20210420
  Serious: No
  Sender: FDA-Public Use
  Company Number: US-DRREDDYS-USA/USA/21/0131517

PATIENT
  Sex: Male

DRUGS (3)
  1. HABITROL [Suspect]
     Active Substance: NICOTINE
     Indication: PRODUCT USED FOR UNKNOWN INDICATION
     Dosage: STAGE 3
     Route: 062
  2. HABITROL [Suspect]
     Active Substance: NICOTINE
     Dosage: STAGE 2
     Route: 062
  3. HABITROL [Suspect]
     Active Substance: NICOTINE
     Dosage: STAGE 1
     Route: 062

REACTIONS (3)
  - Application site pruritus [Unknown]
  - Application site erythema [Unknown]
  - Product administered at inappropriate site [Unknown]
